FAERS Safety Report 6992133-0 (Version None)
Quarter: 2010Q3

REPORT INFORMATION
  Report Type: 
  Country: None (occurrence: None)
  Receive Date: 20100917
  Receipt Date: 20100907
  Transmission Date: 20110219
  Serious: Yes (Hospitalization, Other)
  Sender: FDA-Public Use
  Company Number: US-SOLVAY-00210005490

PATIENT
  Age: 67 Year
  Sex: Male
  Weight: 85.454 kg

DRUGS (17)
  1. NOVOLOG [Concomitant]
     Indication: DIABETES MELLITUS
     Dosage: DAILY DOSE:  UNKNOWN, AS USED: SLIDING SCALE
     Route: 065
  2. LANTUS [Concomitant]
     Indication: DIABETES MELLITUS
     Dosage: DAILY DOSE: 35 UNIT(S), AS USED: 35 UNIT(S), FREQUENCY: ONCE A DAY
     Route: 065
  3. ANDROGEL [Suspect]
     Indication: ERECTILE DYSFUNCTION
     Dosage: DAILY DOSE: 5 GRAM(S)/7.5 GRAM(S) DAILY VIA PUMP
     Route: 062
     Dates: start: 20080101
  4. RANEXA [Concomitant]
     Indication: PROPHYLAXIS
     Dosage: DAILY DOSE:  UNKNOWN
     Route: 048
  5. COREG [Concomitant]
     Indication: CARDIAC DISORDER
     Dosage: DAILY DOSE: 25 MILLIGRAM(S)
     Route: 048
  6. CRESTOR [Concomitant]
     Indication: BLOOD CHOLESTEROL INCREASED
     Dosage: DAILY DOSE: 5 MILLIGRAM(S)
     Route: 048
  7. FUROSEMIDE [Concomitant]
     Indication: HYPERTENSION
     Dosage: DAILY DOSE: 40 MILLIGRAM(S)
     Route: 048
  8. AVAPRO [Concomitant]
     Indication: HYPERTENSION
     Dosage: DAILY DOSE:  UNKNOWN
     Route: 048
  9. NEXIUM [Concomitant]
     Indication: GASTROOESOPHAGEAL REFLUX DISEASE
     Dosage: DAILY DOSE: 80 MILLIGRAM(S)
     Route: 048
  10. COUMADIN [Concomitant]
     Indication: ATRIAL FIBRILLATION
     Dosage: DAILY DOSE: 7.5 MILLIGRAM(S)
     Route: 048
  11. UROXATRAL [Concomitant]
     Indication: DIURETIC THERAPY
     Dosage: DAILY DOSE: 10 MILLIGRAM(S)
     Route: 048
  12. AVODART [Concomitant]
     Indication: PROSTATOMEGALY
     Dosage: DAILY DOSE:  UNKNOWN
     Route: 048
  13. VITAMINS [Concomitant]
     Indication: ILL-DEFINED DISORDER
     Dosage: DAILY DOSE:  UNKNOWN
     Route: 048
  14. XANAX [Concomitant]
     Indication: INSOMNIA
     Dosage: DAILY DOSE:  UNKNOWN, FREQUENCY: AS NEEDED
     Route: 048
  15. RESTORIL [Concomitant]
     Indication: INSOMNIA
     Dosage: DAILY DOSE:  UNKNOWN, FREQUENCY: AS NEEDED
     Route: 048
  16. PERCOCET [Concomitant]
     Indication: PAIN
     Dosage: DAILY DOSE:  UNKNOWN, FREQUENCY: AS NEEDED
     Route: 048
  17. ASPIRIN [Concomitant]
     Indication: ILL-DEFINED DISORDER
     Dosage: DAILY DOSE: 81 MILLIGRAM(S)
     Route: 048

REACTIONS (3)
  - PANCREATIC CARCINOMA [None]
  - PANCREATITIS ACUTE [None]
  - THERAPY REGIMEN CHANGED [None]
